FAERS Safety Report 17592039 (Version 1)
Quarter: 2020Q1

REPORT INFORMATION
  Report Type: Spontaneous
  Country: ES (occurrence: IT)
  Receive Date: 20200327
  Receipt Date: 20200327
  Transmission Date: 20200409
  Serious: Yes (Other)
  Sender: FDA-Public Use
  Company Number: ES-SUN PHARMACEUTICAL INDUSTRIES LTD-2020RR-241529

PATIENT
  Age: 55 Year
  Sex: Male

DRUGS (2)
  1. DOCETAXEL. [Suspect]
     Active Substance: DOCETAXEL
     Indication: LEIOMYOSARCOMA
     Dosage: 75 MG/M2 ON DAY 8 EVERY 3 WEEKS
     Route: 065
  2. GEMCITABINE. [Suspect]
     Active Substance: GEMCITABINE
     Indication: LEIOMYOSARCOMA
     Dosage: 900 MG/M2 ON DAYS 1 AND 8 EVERY 3 WEEKS
     Route: 065

REACTIONS (5)
  - Febrile neutropenia [Unknown]
  - Nausea [Unknown]
  - Thrombocytopenia [Unknown]
  - Fatigue [Unknown]
  - Malignant neoplasm progression [Unknown]
